FAERS Safety Report 8146102 (Version 4)
Quarter: 2012Q4

REPORT INFORMATION
  Report Type: 
  Country: JP (occurrence: JP)
  Receive Date: 20110921
  Receipt Date: 20120928
  Transmission Date: 20130627
  Serious: Yes (Hospitalization, Other)
  Sender: FDA-Public Use
  Company Number: JP-JNJFOC-20110904431

PATIENT
  Age: 78 Year
  Sex: Male
  Weight: 60 kg

DRUGS (27)
  1. LOPEMIN [Suspect]
     Indication: DIARRHOEA
     Route: 048
     Dates: start: 20110714, end: 20111201
  2. VELCADE [Suspect]
     Indication: MULTIPLE MYELOMA
     Route: 042
     Dates: start: 20111220, end: 20111227
  3. VELCADE [Suspect]
     Indication: MULTIPLE MYELOMA
     Route: 042
     Dates: start: 20111116, end: 20111213
  4. VELCADE [Suspect]
     Indication: MULTIPLE MYELOMA
     Route: 042
     Dates: start: 20111019, end: 20111109
  5. VELCADE [Suspect]
     Indication: MULTIPLE MYELOMA
     Route: 042
     Dates: start: 20110921, end: 20111012
  6. VELCADE [Suspect]
     Indication: MULTIPLE MYELOMA
     Route: 042
     Dates: start: 201108
  7. VELCADE [Suspect]
     Indication: MULTIPLE MYELOMA
     Route: 042
     Dates: start: 20110427, end: 20110907
  8. BAKTAR [Concomitant]
     Indication: PNEUMOCYSTIS JIROVECI PNEUMONIA
     Route: 048
     Dates: start: 20110317
  9. BASEN [Concomitant]
     Indication: DIABETES MELLITUS
     Route: 048
  10. FRANDOL [Concomitant]
     Indication: ANGINA PECTORIS
     Route: 062
  11. LIPITOR [Concomitant]
     Indication: HYPERLIPIDAEMIA
     Route: 048
  12. TAKEPRON [Concomitant]
     Indication: GASTROOESOPHAGEAL REFLUX DISEASE
     Route: 048
  13. ADALAT CR [Concomitant]
     Indication: HYPERTENSION
     Route: 048
  14. ARTIST [Concomitant]
     Indication: CARDIAC FAILURE CHRONIC
     Route: 048
  15. LASIX [Concomitant]
     Indication: CARDIAC FAILURE CHRONIC
     Route: 048
     Dates: end: 20110914
  16. LASIX [Concomitant]
     Indication: CARDIAC FAILURE CHRONIC
     Route: 048
     Dates: start: 20110915
  17. AMARYL [Concomitant]
     Indication: DIABETES MELLITUS
     Route: 048
  18. VALTREX [Concomitant]
     Indication: HERPES ZOSTER
     Route: 048
     Dates: start: 20110427
  19. BAYASPIRIN [Concomitant]
     Indication: CORONARY ARTERY DISEASE
     Route: 048
     Dates: start: 20111006
  20. SLOW K [Concomitant]
     Indication: HYPOKALAEMIA
     Route: 048
     Dates: start: 20110809, end: 20111123
  21. METHYCOBAL [Concomitant]
     Indication: NEUROPATHY PERIPHERAL
     Route: 048
     Dates: start: 20110427
  22. DEXAMETHASONE [Concomitant]
     Indication: MULTIPLE MYELOMA
     Route: 048
     Dates: start: 20110427, end: 20110701
  23. DEXAMETHASONE [Concomitant]
     Indication: MULTIPLE MYELOMA
     Route: 048
     Dates: start: 20110412, end: 20110418
  24. DEXAMETHASONE [Concomitant]
     Indication: MULTIPLE MYELOMA
     Route: 048
     Dates: start: 20110706, end: 20111026
  25. MAGLAX [Concomitant]
     Indication: CONSTIPATION
     Route: 048
     Dates: start: 20110421, end: 20110722
  26. VANCOMYCIN HYDROCHLORIDE [Concomitant]
     Indication: PSEUDOMEMBRANOUS COLITIS
     Route: 048
     Dates: start: 20110629, end: 20110706
  27. VANCOMYCIN HYDROCHLORIDE [Concomitant]
     Indication: PSEUDOMEMBRANOUS COLITIS
     Route: 048
     Dates: start: 20110728, end: 20110803

REACTIONS (3)
  - Diarrhoea [Recovered/Resolved]
  - Hypokalaemia [Recovered/Resolved]
  - Drug ineffective [Recovering/Resolving]
